FAERS Safety Report 25810197 (Version 1)
Quarter: 2025Q3

REPORT INFORMATION
  Report Type: Report from Study
  Country: EU (occurrence: EU)
  Receive Date: 20250917
  Receipt Date: 20250917
  Transmission Date: 20251021
  Serious: Yes (Hospitalization)
  Sender: BAXTER
  Company Number: EU-BAXTER-2025BAX019503

PATIENT
  Age: 62 Year
  Sex: Female
  Weight: 71.3 kg

DRUGS (11)
  1. CYCLOPHOSPHAMIDE [Suspect]
     Active Substance: CYCLOPHOSPHAMIDE
     Indication: Follicular lymphoma
     Dosage: 1250 MG, EVERY 3 WK C1-6, DAY 1
     Route: 042
     Dates: start: 20250801
  2. DOXORUBICIN [Suspect]
     Active Substance: DOXORUBICIN
     Indication: Follicular lymphoma
     Dosage: 85 MG, EVERY 3 WK C1-6, DAY 1
     Route: 042
     Dates: start: 20250801
  3. MESNA [Suspect]
     Active Substance: MESNA
     Indication: Urinary tract disorder prophylaxis
     Dosage: 422.5 MG, 6X A DAY (EVERY 4 HOURS)
     Route: 065
     Dates: start: 20250801
  4. PREDNISONE [Suspect]
     Active Substance: PREDNISONE
     Indication: Follicular lymphoma
     Dosage: 100 MG, QD C1-6, DAY1-5, EVERY 1 DAYS
     Route: 048
     Dates: start: 20250801
  5. RITUXIMAB [Suspect]
     Active Substance: RITUXIMAB
     Indication: Follicular lymphoma
     Dosage: 635 MG, EVERY 3 WK C1-8, DAY 1
     Route: 042
     Dates: start: 20250801
  6. VINCRISTINE [Suspect]
     Active Substance: VINCRISTINE
     Indication: Follicular lymphoma
     Dosage: 2 MG, EVERY 3 WK C1-6, DAY 1
     Route: 042
     Dates: start: 20250801
  7. EPCORITAMAB [Suspect]
     Active Substance: EPCORITAMAB
     Indication: Follicular lymphoma
     Route: 058
  8. ACETAMINOPHEN [Concomitant]
     Active Substance: ACETAMINOPHEN
     Indication: Pain
     Route: 065
     Dates: start: 2025
  9. BACTRIM [Concomitant]
     Active Substance: SULFAMETHOXAZOLE\TRIMETHOPRIM
     Indication: Infection prophylaxis
     Route: 065
     Dates: start: 20250801
  10. LEUCOVORIN CALCIUM [Concomitant]
     Active Substance: LEUCOVORIN CALCIUM
     Indication: Anaemia prophylaxis
     Dosage: 25 MG, 1X A WEEK
     Route: 065
     Dates: start: 20250801
  11. VALACYCLOVIR HYDROCHLORIDE [Concomitant]
     Active Substance: VALACYCLOVIR HYDROCHLORIDE
     Indication: Infection prophylaxis
     Dosage: 500 MG, BID (2/DAYS)
     Route: 065
     Dates: start: 20250801

REACTIONS (2)
  - Hyperthermia [Recovered/Resolved]
  - Anaemia [Recovered/Resolved]

NARRATIVE: CASE EVENT DATE: 20250802
